FAERS Safety Report 5811546-3 (Version None)
Quarter: 2008Q3

REPORT INFORMATION
  Report Type: 
  Country: None (occurrence: None)
  Receive Date: 20080714
  Receipt Date: 20080714
  Transmission Date: 20090109
  Serious: Yes (Hospitalization)
  Sender: FDA-Public Use
  Company Number: None

PATIENT
  Sex: Male
  Weight: 63 kg

DRUGS (3)
  1. FLUOROURACIL [Suspect]
     Indication: TONGUE NEOPLASM MALIGNANT STAGE UNSPECIFIED
     Dosage: 600MG/M2 FU QD X 5D
     Dates: start: 20080630, end: 20080705
  2. HYDREA [Suspect]
     Indication: TONGUE NEOPLASM MALIGNANT STAGE UNSPECIFIED
     Dosage: 500 MG PO BID
     Route: 048
     Dates: start: 20080630, end: 20080705
  3. CETUXIMAB [Suspect]
     Dosage: 250MG/M2 FU
     Dates: start: 20080311, end: 20080708

REACTIONS (4)
  - BACTERIAL INFECTION [None]
  - BLOOD CULTURE POSITIVE [None]
  - DIZZINESS [None]
  - HYPOTENSION [None]
